FAERS Safety Report 10255915 (Version 1)
Quarter: 2014Q2

REPORT INFORMATION
  Report Type: Spontaneous
  Country: US (occurrence: US)
  Receive Date: 20140624
  Receipt Date: 20140624
  Transmission Date: 20141212
  Serious: Yes (Hospitalization)
  Sender: FDA-Public Use
  Company Number: US-GLAXOSMITHKLINE-A1077377A

PATIENT
  Sex: Female

DRUGS (12)
  1. ADVAIR [Suspect]
     Indication: CHRONIC OBSTRUCTIVE PULMONARY DISEASE
     Dosage: 1PUFF TWICE PER DAY
     Route: 055
     Dates: start: 1995
  2. FLONASE [Suspect]
     Indication: MULTIPLE ALLERGIES
     Route: 045
  3. PREDNISONE [Concomitant]
  4. PLAVIX [Concomitant]
  5. HYDROXYZINE [Concomitant]
  6. ZOLOFT [Concomitant]
  7. CRESTOR [Concomitant]
  8. ALBUTEROL NEBULIZED [Concomitant]
  9. AZELASTINE [Concomitant]
  10. ASPIRIN [Concomitant]
  11. SINGULAIR [Concomitant]
  12. LIDOCAINE [Concomitant]

REACTIONS (22)
  - Pneumonia [Unknown]
  - Oral candidiasis [Unknown]
  - Dry mouth [Unknown]
  - Cataract operation [Unknown]
  - Myocardial infarction [Unknown]
  - Coronary arterial stent insertion [Unknown]
  - Panic reaction [Unknown]
  - Dyspnoea [Unknown]
  - Intraocular pressure increased [Unknown]
  - Eczema [Unknown]
  - Rash [Unknown]
  - Dermatitis [Unknown]
  - Oxygen saturation decreased [Recovering/Resolving]
  - Cough [Unknown]
  - Nasal congestion [Unknown]
  - Intervertebral disc protrusion [Unknown]
  - Spinal fusion surgery [Unknown]
  - Gait disturbance [Unknown]
  - Pulse absent [Unknown]
  - Epistaxis [Unknown]
  - Off label use [Unknown]
  - Drug ineffective [Unknown]
